FAERS Safety Report 4565143-0 (Version None)
Quarter: 2005Q1

REPORT INFORMATION
  Report Type: 
  Country: None (occurrence: None)
  Receive Date: 20050126
  Receipt Date: 20050111
  Transmission Date: 20050727
  Serious: Yes (Hospitalization)
  Sender: FDA-Public Use
  Company Number: A02200500067

PATIENT
  Age: 52 Year
  Sex: Male

DRUGS (5)
  1. XATRAL               (ALFUZOSIN) [Suspect]
     Indication: PROSTATIC ADENOMA
     Route: 048
  2. MINIRIN (DESMOPRESSIN ACETATE) [Suspect]
     Dosage: 20 MCG BID
     Route: 045
     Dates: start: 19840101, end: 20041114
  3. LEGALON (SILYMARIN) [Suspect]
     Dosage: 70 MB BID
     Route: 048
     Dates: end: 20041114
  4. FENOFIBRATE [Suspect]
     Route: 048
  5. LEVOTHYROXINE SODIUM [Suspect]
     Dosage: 75 MCG OD
     Route: 048
     Dates: start: 19930101

REACTIONS (4)
  - HYPONATRAEMIA [None]
  - OVERDOSE [None]
  - POLYDIPSIA [None]
  - RHABDOMYOLYSIS [None]
